FAERS Safety Report 9238447 (Version 1)
Quarter: 2013Q2

REPORT INFORMATION
  Report Type: Spontaneous
  Country: US (occurrence: None)
  Receive Date: 20130416
  Receipt Date: 20130416
  Transmission Date: 20140414
  Serious: Yes (Hospitalization)
  Sender: FDA-Public Use
  Company Number: ACO_35451_2013

PATIENT
  Age: 59 Year
  Sex: Female

DRUGS (14)
  1. AMPYRA (DALFAMPRIDINE) TABLET, 10MG [Suspect]
     Indication: MULTIPLE SCLEROSIS
     Dates: start: 20110618
  2. GILENYA (FINGOLIMOD HYDROCHLORIDE) [Concomitant]
  3. VENTOLIN ( SALBUTAMOL SULFATE) [Concomitant]
  4. ADVAIR (FLUTICASONE PROPIONATE, SALMETEROL XINAFOATE) [Concomitant]
  5. LISINOPRIL (LISINOPRIL) [Concomitant]
  6. GABAPENTIN (GABAPENTIN) [Concomitant]
  7. FLUTICASONE (FLUTICASONE PROPIONATE) [Concomitant]
  8. BACLOFEN (BACLOFEN) [Concomitant]
  9. CARBAMAZEPINE (CARBAMAZEPINE) [Concomitant]
  10. VENLAFAXINE (VENLAFAXINE HYDROCVHLORIDE) [Concomitant]
  11. METHYLPHENIDATE (METHYLPHENIDATE HYDROCHLORIDE) [Concomitant]
  12. NAMENDA (MEMANTINE HYDROCHLORIDE) [Concomitant]
  13. ZOLPIDEM (ZOLPIDEM TARTRATE) [Concomitant]
  14. HYDROCODONE (HYDROCODONE BITARTRATE) [Concomitant]

REACTIONS (2)
  - Lower limb fracture [None]
  - Fall [None]
